FAERS Safety Report 4525773-9 (Version None)
Quarter: 2004Q4

REPORT INFORMATION
  Report Type: 
  Country: None (occurrence: None)
  Receive Date: 20041213
  Receipt Date: 20041203
  Transmission Date: 20050328
  Serious: Yes (Hospitalization)
  Sender: FDA-Public Use
  Company Number: US-ABBOTT-04P-163-0282472-00

PATIENT
  Age: 12 Year
  Sex: Female

DRUGS (4)
  1. BIAXIN [Suspect]
     Indication: DRUG USE FOR UNKNOWN INDICATION
  2. CEFOXITIN [Concomitant]
     Indication: DRUG USE FOR UNKNOWN INDICATION
  3. MEROPENEM [Concomitant]
     Indication: DRUG USE FOR UNKNOWN INDICATION
  4. AMIKACIN [Concomitant]
     Indication: DRUG USE FOR UNKNOWN INDICATION

REACTIONS (2)
  - BONE MARROW DEPRESSION [None]
  - HEPATIC FAILURE [None]
